FAERS Safety Report 21621659 (Version 1)
Quarter: 2022Q4

REPORT INFORMATION
  Report Type: Report from Study
  Country: US (occurrence: US)
  Receive Date: 20221121
  Receipt Date: 20221121
  Transmission Date: 20230113
  Serious: Yes (Other)
  Sender: FDA-Public Use
  Company Number: US-BRISTOL-MYERS SQUIBB COMPANY-2022-137692

PATIENT
  Age: 80 Year
  Sex: Male
  Weight: 86.18 kg

DRUGS (8)
  1. REVLIMID [Suspect]
     Active Substance: LENALIDOMIDE
     Indication: Plasma cell myeloma
     Route: 048
     Dates: start: 202012
  2. CIMETIDINE [Concomitant]
     Active Substance: CIMETIDINE
  3. CITRACAL + D3 [Concomitant]
  4. DEXAMETHASONE [Concomitant]
     Active Substance: DEXAMETHASONE
  5. FINASTERIDE [Concomitant]
     Active Substance: FINASTERIDE
  6. GLUCOSAMINE [Concomitant]
     Active Substance: GLUCOSAMINE
  7. MINERALS\VITAMINS [Concomitant]
     Active Substance: MINERALS\VITAMINS
  8. VELCADE [Concomitant]
     Active Substance: BORTEZOMIB

REACTIONS (1)
  - Rib fracture [Unknown]
